FAERS Safety Report 7465282-0 (Version None)
Quarter: 2011Q2

REPORT INFORMATION
  Report Type: 
  Country: None (occurrence: None)
  Receive Date: 20110509
  Receipt Date: 20110503
  Transmission Date: 20111010
  Serious: Yes (Other)
  Sender: FDA-Public Use
  Company Number: PHHY2010GB25979

PATIENT
  Sex: Female

DRUGS (3)
  1. CLOZARIL [Suspect]
     Indication: SCHIZOPHRENIA
     Dosage: UNK DF, UNK
     Dates: start: 20100315
  2. CLOZARIL [Suspect]
     Dosage: 50 MG MANE, 150 MG NOCTE
     Route: 048
     Dates: start: 20100326, end: 20100331
  3. PARACETAMOL [Concomitant]
     Indication: PAIN
     Dosage: 1 G, PRN
     Route: 048
     Dates: start: 20100217, end: 20100328

REACTIONS (5)
  - ORTHOSTATIC HYPOTENSION [None]
  - FEELING ABNORMAL [None]
  - LEFT VENTRICULAR HYPERTROPHY [None]
  - SINUS TACHYCARDIA [None]
  - ELECTROCARDIOGRAM ABNORMAL [None]
